FAERS Safety Report 10833710 (Version 1)
Quarter: 2015Q1

REPORT INFORMATION
  Report Type: Not Available
  Country: CA (occurrence: CA)
  Receive Date: 20150219
  Receipt Date: 20150219
  Transmission Date: 20150721
  Serious: Yes (Death, Hospitalization)
  Sender: FDA-Public Use
  Company Number: CA-PURDUE PHARMA-CAN-2015-0005571

PATIENT
  Age: 95 Year
  Sex: Female

DRUGS (3)
  1. DILAUDID [Suspect]
     Active Substance: HYDROMORPHONE HYDROCHLORIDE
     Indication: PRODUCT USED FOR UNKNOWN INDICATION
     Dosage: UNK
     Route: 065
  2. METOPROLOL [Concomitant]
     Active Substance: METOPROLOL
     Indication: PRODUCT USED FOR UNKNOWN INDICATION
     Dosage: UNK
     Route: 065
  3. LOPRESOR /00376902/ [Interacting]
     Active Substance: METOPROLOL TARTRATE
     Indication: PRODUCT USED FOR UNKNOWN INDICATION
     Dosage: UNK
     Route: 065

REACTIONS (15)
  - Drug interaction [Fatal]
  - Overdose [Fatal]
  - Myocardial infarction [Fatal]
  - Dyspnoea [Fatal]
  - Respiratory disorder [Fatal]
  - Pallor [Fatal]
  - Cyanosis [Fatal]
  - Hypotension [Fatal]
  - Sleep disorder [Fatal]
  - Bronchospasm [Fatal]
  - Restlessness [Fatal]
  - Medication error [Fatal]
  - Dehydration [Fatal]
  - Agitation [Fatal]
  - Peripheral coldness [Fatal]
